FAERS Safety Report 6377236-6 (Version None)
Quarter: 2009Q3

REPORT INFORMATION
  Report Type: 
  Country: None (occurrence: None)
  Receive Date: 20090925
  Receipt Date: 20090918
  Transmission Date: 20100115
  Serious: Yes (Other)
  Sender: FDA-Public Use
  Company Number: B0584965A

PATIENT
  Sex: Male

DRUGS (5)
  1. REQUIP [Suspect]
     Indication: PARKINSON'S DISEASE
     Dosage: 40MG PER DAY
     Route: 048
  2. CO-CARELDOPA [Concomitant]
  3. AMANTADINE HCL [Concomitant]
  4. RASAGILINE MESILATE [Concomitant]
  5. ENTACAPONE [Concomitant]

REACTIONS (4)
  - MANIA [None]
  - OBSESSIVE-COMPULSIVE DISORDER [None]
  - SELF-MEDICATION [None]
  - THERAPY REGIMEN CHANGED [None]
